FAERS Safety Report 5390118-1 (Version None)
Quarter: 2007Q3

REPORT INFORMATION
  Report Type: 
  Country: None (occurrence: None)
  Receive Date: 20070718
  Receipt Date: 20070712
  Transmission Date: 20080115
  Serious: Yes (Life-Threatening, Hospitalization)
  Sender: FDA-Public Use
  Company Number: B0479520A

PATIENT
  Age: 39 Year
  Sex: Male
  Weight: 43 kg

DRUGS (2)
  1. KIVEXA [Suspect]
     Indication: HIV INFECTION
     Route: 048
     Dates: start: 20070503, end: 20070513
  2. SUSTIVA [Concomitant]
     Indication: HIV INFECTION
     Route: 048
     Dates: start: 20061201, end: 20070513

REACTIONS (3)
  - ACIDOSIS [None]
  - RENAL FAILURE ACUTE [None]
  - VOMITING [None]
